FAERS Safety Report 17964906 (Version 1)
Quarter: 2020Q2

REPORT INFORMATION
  Report Type: Spontaneous
  Country: JP (occurrence: JP)
  Receive Date: 20200630
  Receipt Date: 20200630
  Transmission Date: 20200714
  Serious: Yes (Hospitalization)
  Sender: FDA-Public Use
  Company Number: JP-ELI_LILLY_AND_COMPANY-JP202006012289

PATIENT
  Age: 38 Year
  Sex: Female

DRUGS (11)
  1. TREPROST [Suspect]
     Active Substance: TREPROSTINIL
     Indication: PULMONARY ARTERIAL HYPERTENSION
     Dosage: UNK, UNKNOWN
     Route: 042
     Dates: start: 20151126
  2. POTASSIUM CHLORIDE. [Concomitant]
     Active Substance: POTASSIUM CHLORIDE
     Indication: PRODUCT USED FOR UNKNOWN INDICATION
     Dosage: 2 G, UNKNOWN
     Route: 065
     Dates: start: 20190805
  3. UPTRAVI [Suspect]
     Active Substance: SELEXIPAG
     Indication: PULMONARY ARTERIAL HYPERTENSION
     Dosage: 0.8 MG, DAILY
     Route: 048
     Dates: start: 20170218, end: 20170228
  4. REVATIO [Concomitant]
     Active Substance: SILDENAFIL CITRATE
     Indication: PULMONARY ARTERIAL HYPERTENSION
     Dosage: 60 MG, UNKNOWN
     Route: 065
     Dates: start: 2009
  5. ADCIRCA [Suspect]
     Active Substance: TADALAFIL
     Indication: PULMONARY ARTERIAL HYPERTENSION
     Dosage: 40 MG, UNKNOWN
     Route: 065
     Dates: start: 20150520
  6. ALDACTONE A [Suspect]
     Active Substance: SPIRONOLACTONE
     Indication: HYPERTENSION
     Dosage: 25 MG, DAILY
     Route: 048
     Dates: start: 2009, end: 20181121
  7. OPSUMIT [Concomitant]
     Active Substance: MACITENTAN
     Indication: PULMONARY ARTERIAL HYPERTENSION
     Dosage: 10 MG, UNKNOWN
     Route: 065
     Dates: start: 20160706
  8. UPTRAVI [Suspect]
     Active Substance: SELEXIPAG
     Dosage: 1.6 MG, DAILY
     Route: 048
     Dates: start: 20170301, end: 20170314
  9. UPTRAVI [Suspect]
     Active Substance: SELEXIPAG
     Dosage: 3.2 MG, DAILY
     Route: 048
     Dates: start: 20170329
  10. ALDACTONE A [Suspect]
     Active Substance: SPIRONOLACTONE
     Indication: CARDIAC FAILURE
     Dosage: 25 MG, DAILY
     Route: 048
     Dates: start: 20181219
  11. UPTRAVI [Suspect]
     Active Substance: SELEXIPAG
     Dosage: 2.4 MG, DAILY
     Route: 048
     Dates: start: 20170315, end: 20170328

REACTIONS (11)
  - Pain [Recovering/Resolving]
  - Headache [Recovered/Resolved]
  - Arthralgia [Recovered/Resolved]
  - Nasopharyngitis [Recovered/Resolved]
  - Diarrhoea [Recovering/Resolving]
  - Abdominal pain upper [Recovered/Resolved]
  - Catheter site pain [Recovering/Resolving]
  - Malaise [Recovering/Resolving]
  - Headache [Recovering/Resolving]
  - Cardiac failure [Recovering/Resolving]
  - Tachycardia [Recovering/Resolving]

NARRATIVE: CASE EVENT DATE: 20170219
